FAERS Safety Report 21652130 (Version 1)
Quarter: 2022Q4

REPORT INFORMATION
  Report Type: Spontaneous
  Country: IN (occurrence: IN)
  Receive Date: 20221128
  Receipt Date: 20221128
  Transmission Date: 20230113
  Serious: Yes (Death)
  Sender: FDA-Public Use
  Company Number: IN-PFIZER INC-PV202200066757

PATIENT
  Age: 60 Year
  Sex: Female

DRUGS (2)
  1. LORLATINIB [Suspect]
     Active Substance: LORLATINIB
     Indication: Non-small cell lung cancer metastatic
     Dosage: UNK
     Route: 048
  2. LORLATINIB [Suspect]
     Active Substance: LORLATINIB
     Dosage: 100 MG
     Dates: start: 2020

REACTIONS (11)
  - Death [Fatal]
  - Weight fluctuation [Unknown]
  - Blood thyroid stimulating hormone increased [Unknown]
  - Low density lipoprotein increased [Unknown]
  - Blood pressure systolic increased [Unknown]
  - Alanine aminotransferase decreased [Unknown]
  - Haemoglobin increased [Unknown]
  - Blood calcium decreased [Unknown]
  - Abdominal distension [Unknown]
  - Pain [Unknown]
  - Nausea [Unknown]

NARRATIVE: CASE EVENT DATE: 20221027
